FAERS Safety Report 11186235 (Version 1)
Quarter: 2015Q2

REPORT INFORMATION
  Report Type: Spontaneous
  Country: US (occurrence: US)
  Receive Date: 20150612
  Receipt Date: 20150612
  Transmission Date: 20150821
  Serious: No
  Sender: FDA-Public Use
  Company Number: US-ASTRAZENECA-1997UW40961

PATIENT
  Age: 17243 Day
  Sex: Female
  Weight: 91.2 kg

DRUGS (18)
  1. GLIMEPERIDE [Concomitant]
     Active Substance: GLIMEPIRIDE
     Indication: DIABETES MELLITUS
  2. LEVOTHYROXINE [Concomitant]
     Active Substance: LEVOTHYROXINE
  3. LOVASTATIN. [Concomitant]
     Active Substance: LOVASTATIN
  4. CRANBERRY EXTRACT OTC [Concomitant]
  5. METOPROLOL [Concomitant]
     Active Substance: METOPROLOL
  6. FARXIGA [Suspect]
     Active Substance: DAPAGLIFLOZIN PROPANEDIOL
     Indication: TYPE 2 DIABETES MELLITUS
     Route: 048
     Dates: start: 20150204, end: 20150420
  7. BYDUREON [Suspect]
     Active Substance: EXENATIDE
     Indication: TYPE 2 DIABETES MELLITUS
     Route: 058
  8. PRILOSEC [Suspect]
     Active Substance: OMEPRAZOLE MAGNESIUM
     Route: 048
  9. ALLERGY MEDICATION [Interacting]
     Active Substance: DIPHENHYDRAMINE HYDROCHLORIDE
     Dosage: UNKNOWN
     Route: 065
     Dates: start: 199608
  10. METFORMIN [Concomitant]
     Active Substance: METFORMIN HYDROCHLORIDE
  11. ACCOLATE [Interacting]
     Active Substance: ZAFIRLUKAST
     Indication: ASTHMA
     Route: 048
     Dates: start: 19970303
  12. SUPPLEMENTS [Concomitant]
     Active Substance: UNSPECIFIED INGREDIENT
  13. PULMICORT FLEXHALER [Suspect]
     Active Substance: BUDESONIDE
     Route: 055
  14. JANUVIA [Concomitant]
     Active Substance: SITAGLIPTIN PHOSPHATE
  15. DIFLUCAN [Concomitant]
     Active Substance: FLUCONAZOLE
  16. VITAMINS [Concomitant]
     Active Substance: VITAMINS
  17. LOSARTAN [Concomitant]
     Active Substance: LOSARTAN
     Indication: BLOOD PRESSURE ABNORMAL
  18. NASONEX [Concomitant]
     Active Substance: MOMETASONE FUROATE
     Indication: HYPERSENSITIVITY

REACTIONS (2)
  - Urinary tract infection [Unknown]
  - Drug interaction [Unknown]

NARRATIVE: CASE EVENT DATE: 19970305
